FAERS Safety Report 18299332 (Version 1)
Quarter: 2020Q3

REPORT INFORMATION
  Report Type: Spontaneous
  Country: FR (occurrence: FR)
  Receive Date: 20200922
  Receipt Date: 20200922
  Transmission Date: 20201103
  Serious: Yes (Death)
  Sender: FDA-Public Use
  Company Number: FR-ETHYPHARM-202001443

PATIENT
  Sex: Male

DRUGS (1)
  1. BUPRENORPHINE. [Suspect]
     Active Substance: BUPRENORPHINE
     Indication: PRODUCT USED FOR UNKNOWN INDICATION
     Dosage: NON RENSEIGN?E
     Route: 065

REACTIONS (5)
  - Drug dependence [Fatal]
  - Respiratory depression [Fatal]
  - Drug abuse [Fatal]
  - Drug abuser [Fatal]
  - Accidental death [Fatal]

NARRATIVE: CASE EVENT DATE: 2018
